FAERS Safety Report 6462601-9 (Version None)
Quarter: 2009Q4

REPORT INFORMATION
  Report Type: 
  Country: None (occurrence: None)
  Receive Date: 20091130
  Receipt Date: 20091116
  Transmission Date: 20100525
  Serious: Yes (Congenital Anomaly, Other)
  Sender: FDA-Public Use
  Company Number: GB-MYLANLABS-2009S1019830

PATIENT

DRUGS (7)
  1. FLUOXETINE [Suspect]
     Route: 064
     Dates: start: 20081117, end: 20081124
  2. AMOXICILLIN [Concomitant]
     Indication: LOWER RESPIRATORY TRACT INFECTION
     Route: 064
     Dates: start: 20081117, end: 20081124
  3. BECOTIDE [Concomitant]
     Indication: ASTHMA
     Route: 064
     Dates: start: 20061222
  4. AMOXICILLIN AND CLAVULANATE POTASSIUM [Concomitant]
     Indication: PAROTITIS
     Route: 064
     Dates: start: 20081201, end: 20081208
  5. GAVISCON [Concomitant]
     Indication: DYSPEPSIA
     Route: 064
     Dates: start: 20090508, end: 20090823
  6. LACTULOSE [Concomitant]
     Indication: CONSTIPATION
     Route: 064
  7. ALBUTEROL [Concomitant]
     Indication: ASTHMA
     Route: 064
     Dates: start: 20061113

REACTIONS (2)
  - DRUG EXPOSURE DURING PREGNANCY [None]
  - HYPOSPADIAS [None]
